FAERS Safety Report 11278017 (Version 2)
Quarter: 2015Q3

REPORT INFORMATION
  Report Type: Report from Study
  Country: DE (occurrence: DE)
  Receive Date: 20150717
  Receipt Date: 20150828
  Transmission Date: 20151125
  Serious: Yes (Death, Hospitalization)
  Sender: FDA-Public Use
  Company Number: DE-ROCHE-ITM201502IM010485

PATIENT
  Age: 71 Year
  Sex: Male
  Weight: 73.3 kg

DRUGS (3)
  1. ESBRIET [Suspect]
     Active Substance: PIRFENIDONE
     Route: 048
     Dates: start: 20140710, end: 20150503
  2. ESBRIET [Suspect]
     Active Substance: PIRFENIDONE
     Route: 048
     Dates: start: 20150504, end: 20150707
  3. ESBRIET [Suspect]
     Active Substance: PIRFENIDONE
     Indication: IDIOPATHIC PULMONARY FIBROSIS
     Route: 048
     Dates: start: 20140626

REACTIONS (11)
  - Seizure [Unknown]
  - Fall [Unknown]
  - Vomiting [Fatal]
  - Pyrexia [Fatal]
  - Malaise [Unknown]
  - Cough [Not Recovered/Not Resolved]
  - Oxygen saturation decreased [Fatal]
  - General physical health deterioration [Fatal]
  - Pulmonary mycosis [Unknown]
  - Sunburn [Recovered/Resolved]
  - Pneumonia [Unknown]

NARRATIVE: CASE EVENT DATE: 20150102
